FAERS Safety Report 7986908-9 (Version None)
Quarter: 2011Q4

REPORT INFORMATION
  Report Type: 
  Country: None (occurrence: None)
  Receive Date: 20111216
  Receipt Date: 20110405
  Transmission Date: 20120403
  Serious: No
  Sender: FDA-Public Use
  Company Number: US-BRISTOL-MYERS SQUIBB COMPANY-15592801

PATIENT
  Age: 39 Year
  Sex: Female
  Weight: 50 kg

DRUGS (5)
  1. MACROBID [Concomitant]
     Dosage: TABS
  2. PHENAZOPYRIDINE HCL TAB [Concomitant]
     Dosage: TABS
  3. ADDERALL 5 [Concomitant]
     Dosage: 30-60MG
  4. VESICARE [Concomitant]
     Indication: BLADDER SPASM
  5. ABILIFY [Suspect]
     Indication: BIPOLAR I DISORDER
     Route: 048

REACTIONS (3)
  - FEELING ABNORMAL [None]
  - BURNING SENSATION [None]
  - MICTURITION URGENCY [None]
